FAERS Safety Report 4298037-9 (Version None)
Quarter: 2004Q1

REPORT INFORMATION
  Report Type: 
  Country: None (occurrence: None)
  Receive Date: 20040218
  Receipt Date: 20020102
  Transmission Date: 20041129
  Serious: Yes (Other)
  Sender: FDA-Public Use
  Company Number: US-BRISTOL-MYERS SQUIBB COMPANY-11715000

PATIENT
  Age: 47 Year
  Sex: Female

DRUGS (7)
  1. STADOL [Suspect]
     Indication: HEADACHE
     Route: 045
  2. INDERAL [Concomitant]
  3. MIDRIN [Concomitant]
  4. CAFERGOT [Concomitant]
  5. VANCENASE [Concomitant]
  6. IMITREX [Concomitant]
  7. PAMELOR [Concomitant]

REACTIONS (2)
  - DEPENDENCE [None]
  - DRUG ADDICT [None]
